FAERS Safety Report 16854534 (Version 1)
Quarter: 2019Q3

REPORT INFORMATION
  Report Type: Spontaneous
  Country: US (occurrence: US)
  Receive Date: 20190926
  Receipt Date: 20190926
  Transmission Date: 20191005
  Serious: No
  Sender: FDA-Public Use
  Company Number: US-BIOGEN-2019BI00788461

PATIENT
  Sex: Female

DRUGS (1)
  1. AVONEX [Suspect]
     Active Substance: INTERFERON BETA-1A
     Indication: MULTIPLE SCLEROSIS
     Route: 030

REACTIONS (6)
  - Injection site calcification [Unknown]
  - Aspartate aminotransferase abnormal [Unknown]
  - Fatigue [Unknown]
  - Weight decreased [Unknown]
  - Musculoskeletal disorder [Unknown]
  - Skin discolouration [Unknown]
